FAERS Safety Report 8403250-2 (Version None)
Quarter: 2012Q2

REPORT INFORMATION
  Report Type: 
  Country: None (occurrence: None)
  Receive Date: 20120601
  Receipt Date: 20120524
  Transmission Date: 20120825
  Serious: Yes (Hospitalization, Other)
  Sender: FDA-Public Use
  Company Number: US-MERCK-1204USA00039

PATIENT
  Age: 68 Year
  Sex: Female

DRUGS (7)
  1. FOSAMAX [Suspect]
     Route: 048
     Dates: start: 20011011, end: 20070511
  2. ALENDRONATE SODIUM [Suspect]
     Indication: OSTEOPOROSIS
     Route: 048
     Dates: start: 20080425, end: 20090101
  3. VITAMINS (UNSPECIFIED) [Concomitant]
     Route: 065
  4. FOSAMAX [Suspect]
     Route: 048
     Dates: start: 20010901, end: 20090301
  5. CALCIUM (UNSPECIFIED) [Concomitant]
     Route: 065
  6. FOSAMAX [Suspect]
     Indication: OSTEOPOROSIS
     Route: 048
     Dates: start: 20010706, end: 20011010
  7. FOSAMAX PLUS D [Suspect]
     Indication: OSTEOPOROSIS
     Route: 048
     Dates: start: 20070512, end: 20080424

REACTIONS (5)
  - LOW TURNOVER OSTEOPATHY [None]
  - FEMUR FRACTURE [None]
  - FALL [None]
  - BREAST CANCER [None]
  - HYPERTENSION [None]
